FAERS Safety Report 5350017-8 (Version None)
Quarter: 2007Q2

REPORT INFORMATION
  Report Type: 
  Country: None (occurrence: None)
  Receive Date: 20070607
  Receipt Date: 20070529
  Transmission Date: 20071010
  Serious: Yes (Other)
  Sender: FDA-Public Use
  Company Number: US-PFIZER INC-2007044783

PATIENT
  Sex: Female

DRUGS (1)
  1. RELPAX [Suspect]
     Dosage: DAILY DOSE:40MG
     Dates: start: 20070501, end: 20070501

REACTIONS (3)
  - DYSPNOEA [None]
  - EYE SWELLING [None]
  - THROAT TIGHTNESS [None]
